FAERS Safety Report 8818936 (Version 2)
Quarter: 2012Q4

REPORT INFORMATION
  Report Type: 
  Country: JP (occurrence: JP)
  Receive Date: 20121001
  Receipt Date: 20121010
  Transmission Date: 20130627
  Serious: Yes (Hospitalization)
  Sender: FDA-Public Use
  Company Number: PHHY2012JP084079

PATIENT
  Age: 74 Year
  Sex: Female

DRUGS (5)
  1. NATEGLINIDE [Suspect]
     Indication: TYPE 2 DIABETES MELLITUS
     Dosage: 270 mg, per day
     Route: 048
     Dates: start: 20120904, end: 20120914
  2. NATEGLINIDE [Suspect]
     Dosage: 270 mg per day
     Route: 048
     Dates: start: 20120918
  3. DIOVAN [Suspect]
     Indication: HYPERTENSION
     Dosage: 40 mg, UNK
     Route: 048
     Dates: start: 20100511
  4. SITAGLIPTIN PHOSPHATE [Suspect]
     Indication: TYPE 2 DIABETES MELLITUS
     Dosage: 100 mg, UNK
     Route: 048
     Dates: start: 20120612, end: 20120914
  5. SITAGLIPTIN PHOSPHATE [Suspect]
     Dosage: 100 mg, UNK
     Route: 048
     Dates: start: 20120918

REACTIONS (11)
  - Pyelonephritis [Recovered/Resolved]
  - Urinary tract infection [Recovered/Resolved]
  - Cystitis [Recovered/Resolved]
  - Pyrexia [Recovered/Resolved]
  - Abdominal pain [Recovered/Resolved]
  - Movement disorder [Recovered/Resolved]
  - Vertigo [Recovered/Resolved]
  - Dizziness [Recovered/Resolved]
  - Vomiting [Recovered/Resolved]
  - Nausea [Recovered/Resolved]
  - Urine abnormality [Recovered/Resolved]
